FAERS Safety Report 18095166 (Version 2)
Quarter: 2020Q3

REPORT INFORMATION
  Report Type: Spontaneous
  Country: DK (occurrence: DK)
  Receive Date: 20200731
  Receipt Date: 20200731
  Transmission Date: 20201103
  Serious: Yes (Other)
  Sender: FDA-Public Use
  Company Number: DK-JNJFOC-20200731853

PATIENT

DRUGS (2)
  1. IBUPROFEN. [Suspect]
     Active Substance: IBUPROFEN
     Indication: PROCEDURAL PAIN
     Route: 065
  2. IBUPROFEN. [Suspect]
     Active Substance: IBUPROFEN
     Route: 065

REACTIONS (11)
  - Haemoglobin decreased [Unknown]
  - Adverse event [Unknown]
  - Abdominal pain [Unknown]
  - Pneumonia [Unknown]
  - Postoperative wound infection [Unknown]
  - Deep vein thrombosis [Unknown]
  - Complication associated with device [Unknown]
  - Cardiac disorder [Unknown]
  - Constipation [Unknown]
  - Vertigo [Unknown]
  - Infection [Unknown]
